FAERS Safety Report 25202263 (Version 1)
Quarter: 2025Q2

REPORT INFORMATION
  Report Type: Spontaneous
  Country: FR (occurrence: FR)
  Receive Date: 20250416
  Receipt Date: 20250416
  Transmission Date: 20250717
  Serious: Yes (Hospitalization)
  Sender: TEVA
  Company Number: None

PATIENT
  Age: 63 Year
  Sex: Male
  Weight: 93 kg

DRUGS (25)
  1. OLANZAPINE [Interacting]
     Active Substance: OLANZAPINE
     Indication: Major depression
     Route: 048
     Dates: start: 20240605, end: 20240607
  2. OLANZAPINE [Interacting]
     Active Substance: OLANZAPINE
     Indication: Major depression
     Route: 048
     Dates: start: 20240611, end: 20240613
  3. OLANZAPINE [Interacting]
     Active Substance: OLANZAPINE
     Indication: Major depression
     Route: 048
     Dates: start: 20240531, end: 20240604
  4. OLANZAPINE [Interacting]
     Active Substance: OLANZAPINE
     Indication: Major depression
     Route: 048
     Dates: start: 20240608, end: 20240610
  5. RISPERIDONE [Interacting]
     Active Substance: RISPERIDONE
     Indication: Major depression
     Route: 048
     Dates: start: 20240514, end: 20240517
  6. RISPERIDONE [Interacting]
     Active Substance: RISPERIDONE
     Indication: Major depression
     Route: 048
     Dates: start: 20240404, end: 20240408
  7. RISPERIDONE [Interacting]
     Active Substance: RISPERIDONE
     Indication: Major depression
     Route: 048
     Dates: start: 20240418, end: 20240503
  8. RISPERIDONE [Interacting]
     Active Substance: RISPERIDONE
     Indication: Major depression
     Route: 048
     Dates: start: 20240504, end: 20240513
  9. RISPERIDONE [Interacting]
     Active Substance: RISPERIDONE
     Indication: Major depression
     Route: 048
     Dates: start: 20240409, end: 20240417
  10. RISPERIDONE [Interacting]
     Active Substance: RISPERIDONE
     Indication: Major depression
     Route: 048
     Dates: start: 20240518, end: 20240531
  11. RISPERIDONE [Interacting]
     Active Substance: RISPERIDONE
     Indication: Major depression
     Route: 048
     Dates: start: 20240601, end: 20240604
  12. RISPERIDONE [Interacting]
     Active Substance: RISPERIDONE
     Indication: Major depression
     Route: 048
     Dates: start: 20240605, end: 20240607
  13. RISPERIDONE [Interacting]
     Active Substance: RISPERIDONE
     Indication: Major depression
     Route: 048
     Dates: start: 20240608, end: 20240613
  14. TROPATEPINE HYDROCHLORIDE [Suspect]
     Active Substance: TROPATEPINE HYDROCHLORIDE
     Indication: Tremor
     Route: 048
     Dates: start: 20240607, end: 20240611
  15. TROPATEPINE HYDROCHLORIDE [Suspect]
     Active Substance: TROPATEPINE HYDROCHLORIDE
     Indication: Tremor
     Route: 048
     Dates: start: 20240619, end: 20240620
  16. OXAZEPAM [Concomitant]
     Active Substance: OXAZEPAM
     Indication: Mixed anxiety and depressive disorder
     Route: 048
  17. BISOPROLOL [Concomitant]
     Active Substance: BISOPROLOL
     Indication: Hypertension
     Dosage: BISOPROLOL (ACID FUMARATE)
     Route: 048
  18. LOXAPINE [Concomitant]
     Active Substance: LOXAPINE
     Indication: Delirium
     Route: 048
     Dates: start: 20240608, end: 20240608
  19. ATORVASTATIN [Concomitant]
     Active Substance: ATORVASTATIN
     Indication: Hypertension
     Route: 048
  20. HYDROCHLOROTHIAZIDE [Concomitant]
     Active Substance: HYDROCHLOROTHIAZIDE
     Indication: Hypertension
     Route: 048
  21. DOLIPRANE [Concomitant]
     Active Substance: ACETAMINOPHEN
     Indication: Pyrexia
     Route: 048
  22. CLOMIPRAMINE HYDROCHLORIDE [Interacting]
     Active Substance: CLOMIPRAMINE HYDROCHLORIDE
     Indication: Major depression
     Route: 048
     Dates: start: 20240527, end: 20240531
  23. CLOMIPRAMINE HYDROCHLORIDE [Interacting]
     Active Substance: CLOMIPRAMINE HYDROCHLORIDE
     Indication: Major depression
     Route: 048
     Dates: start: 20240611, end: 20240613
  24. CLOMIPRAMINE HYDROCHLORIDE [Interacting]
     Active Substance: CLOMIPRAMINE HYDROCHLORIDE
     Indication: Major depression
     Route: 048
     Dates: start: 20240522, end: 20240526
  25. CLOMIPRAMINE HYDROCHLORIDE [Interacting]
     Active Substance: CLOMIPRAMINE HYDROCHLORIDE
     Indication: Major depression
     Route: 048
     Dates: start: 20240601, end: 20240610

REACTIONS (2)
  - Neuroleptic malignant syndrome [Recovered/Resolved]
  - Drug interaction [Recovered/Resolved]

NARRATIVE: CASE EVENT DATE: 20240608
